FAERS Safety Report 11074879 (Version 1)
Quarter: 2015Q2

REPORT INFORMATION
  Report Type: Spontaneous
  Country: DK (occurrence: None)
  Receive Date: 20150427
  Receipt Date: 20150427
  Transmission Date: 20150821
  Serious: Yes (Other)
  Sender: FDA-Public Use
  Company Number: UCM201504-000246

PATIENT
  Age: 49 Year
  Sex: Female

DRUGS (2)
  1. TOLFENAMIC (TOLFENAMIC) (TOLFENAMIC) [Suspect]
     Active Substance: TOLFENAMIC ACID
     Dosage: - STOPPED
  2. TIZANIDINE (TIZANIDINE) (TIZANIDINE) [Suspect]
     Active Substance: TIZANIDINE
     Dosage: - STOPPED

REACTIONS (1)
  - Linear IgA disease [None]
